FAERS Safety Report 4875343-8 (Version None)
Quarter: 2006Q1

REPORT INFORMATION
  Report Type: 
  Country: None (occurrence: None)
  Receive Date: 20060105
  Receipt Date: 20060103
  Transmission Date: 20060701
  Serious: Yes (Hospitalization)
  Sender: FDA-Public Use
  Company Number: 2005BI019861

PATIENT
  Age: 65 Year
  Sex: Female

DRUGS (2)
  1. AVONEX [Suspect]
     Indication: MULTIPLE SCLEROSIS
     Dosage: 30 UG; QW; IM
     Route: 030
     Dates: start: 20010615, end: 20051026
  2. AVONEX [Suspect]
     Indication: MULTIPLE SCLEROSIS
     Dosage: QW; SC
     Route: 058
     Dates: start: 20051029

REACTIONS (6)
  - AMNESIA [None]
  - ASTHENIA [None]
  - BLOOD URINE PRESENT [None]
  - CONFUSIONAL STATE [None]
  - KIDNEY INFECTION [None]
  - URINARY TRACT INFECTION [None]
